FAERS Safety Report 12803369 (Version 3)
Quarter: 2017Q1

REPORT INFORMATION
  Report Type: Spontaneous
  Country: US (occurrence: US)
  Receive Date: 20161003
  Receipt Date: 20170326
  Transmission Date: 20170428
  Serious: Yes (Death, Hospitalization, Other)
  Sender: FDA-Public Use
  Company Number: US-009507513-1610USA000503

PATIENT
  Sex: Female
  Weight: 95.24 kg

DRUGS (3)
  1. JANUMET [Suspect]
     Active Substance: METFORMIN HYDROCHLORIDE\SITAGLIPTIN PHOSPHATE
     Indication: TYPE 2 DIABETES MELLITUS
     Dosage: 50-1000MG TABLET BID WITH MEALS
     Route: 048
     Dates: start: 201405, end: 201501
  2. JANUVIA [Suspect]
     Active Substance: SITAGLIPTIN PHOSPHATE
     Indication: METABOLIC SYNDROME
  3. JANUVIA [Suspect]
     Active Substance: SITAGLIPTIN PHOSPHATE
     Indication: TYPE 2 DIABETES MELLITUS
     Dosage: 100MG, 1 TABLET DAILY
     Route: 048
     Dates: start: 20080805, end: 201404

REACTIONS (22)
  - Sleep apnoea syndrome [Unknown]
  - Pancreatic carcinoma metastatic [Fatal]
  - Hepatic steatosis [Unknown]
  - Shoulder arthroplasty [Unknown]
  - Pollakiuria [Unknown]
  - Neuropathy peripheral [Unknown]
  - Pharyngitis [Unknown]
  - Cholelithiasis [Unknown]
  - Dyspnoea exertional [Unknown]
  - Angina pectoris [Unknown]
  - Hepatic cirrhosis [Unknown]
  - Epistaxis [Unknown]
  - Palpitations [Unknown]
  - Cataract [Unknown]
  - Urinary incontinence [Unknown]
  - Anxiety [Unknown]
  - Fungal infection [Recovering/Resolving]
  - Thrombocytopenia [Unknown]
  - Bone marrow failure [Unknown]
  - Rhinorrhoea [Unknown]
  - Vision blurred [Unknown]
  - Dizziness [Unknown]

NARRATIVE: CASE EVENT DATE: 2008
